FAERS Safety Report 9619423 (Version 1)
Quarter: 2013Q4

REPORT INFORMATION
  Report Type: Spontaneous
  Country: GB (occurrence: GB)
  Receive Date: 20131014
  Receipt Date: 20131014
  Transmission Date: 20140711
  Serious: Yes (Hospitalization, Other)
  Sender: FDA-Public Use
  Company Number: PHHY2013GB109853

PATIENT
  Age: 68 Year
  Sex: Female
  Weight: 79.37 kg

DRUGS (13)
  1. OMEPRAZOLE [Suspect]
     Indication: HIATUS HERNIA
     Dosage: 2 DF, UNK (FROM TWO TO ONE PER DAY)
  2. LANSOPRAZOLE [Suspect]
     Indication: GASTRITIS EROSIVE
     Dosage: 30 MG, UNK
     Dates: start: 20110205
  3. LANSOPRAZOLE [Suspect]
     Indication: FAECES DISCOLOURED
     Dosage: 30 MG, UNK
     Route: 048
     Dates: start: 20130314, end: 20130322
  4. PIMOZIDE [Suspect]
  5. ERYTHROMYCIN [Concomitant]
     Indication: LOWER RESPIRATORY TRACT INFECTION
  6. CYNOMEL [Concomitant]
  7. COPPER [Concomitant]
  8. VITAMIN D2 [Concomitant]
  9. PREDNISOLONE [Concomitant]
  10. COD LIVER OIL [Concomitant]
  11. ZINC [Concomitant]
  12. CISAPRIDE [Concomitant]
  13. VITAMIN K [Concomitant]

REACTIONS (8)
  - Presyncope [Unknown]
  - Urinary tract infection [Unknown]
  - Electrolyte imbalance [Unknown]
  - Weight increased [Unknown]
  - Feeling hot [Unknown]
  - Breast cancer [Unknown]
  - Pain [Not Recovered/Not Resolved]
  - Diarrhoea [Not Recovered/Not Resolved]
